FAERS Safety Report 6405577-2 (Version None)
Quarter: 2009Q4

REPORT INFORMATION
  Report Type: 
  Country: None (occurrence: None)
  Receive Date: 20091019
  Receipt Date: 20091009
  Transmission Date: 20100525
  Serious: Yes (Hospitalization)
  Sender: FDA-Public Use
  Company Number: US-JNJFOC-20091004486

PATIENT
  Age: 8 Year
  Sex: Male
  Weight: 22.68 kg

DRUGS (2)
  1. CHILDREN'S TYLENOL LIQUID VERY BERRY STRAWBERRY [Suspect]
     Route: 048
  2. CHILDREN'S TYLENOL LIQUID VERY BERRY STRAWBERRY [Suspect]
     Indication: EAR PAIN
     Route: 048

REACTIONS (2)
  - EAR INFECTION [None]
  - TRANSMISSION OF AN INFECTIOUS AGENT VIA A MEDICINAL PRODUCT [None]
